FAERS Safety Report 5673002-5 (Version None)
Quarter: 2008Q1

REPORT INFORMATION
  Report Type: 
  Country: None (occurrence: None)
  Receive Date: 20080319
  Receipt Date: 20080211
  Transmission Date: 20080703
  Serious: No
  Sender: FDA-Public Use
  Company Number: US-ASTRAZENECA-2008UW02889

PATIENT
  Sex: Female

DRUGS (1)
  1. SYMBICORT [Suspect]
     Indication: ASTHMA
     Dosage: 160/4.5
     Route: 055
     Dates: start: 20080101

REACTIONS (3)
  - CHEST DISCOMFORT [None]
  - DYSPNOEA [None]
  - HEADACHE [None]
